FAERS Safety Report 19846725 (Version 1)
Quarter: 2021Q3

REPORT INFORMATION
  Report Type: Spontaneous
  Country: DE (occurrence: DE)
  Receive Date: 20210917
  Receipt Date: 20210917
  Transmission Date: 20211014
  Serious: Yes (Hospitalization)
  Sender: FDA-Public Use
  Company Number: DE-TEVA-2021-DE-1952631

PATIENT
  Age: 79 Year
  Sex: Male
  Weight: 72 kg

DRUGS (8)
  1. BICANORM [Concomitant]
     Active Substance: SODIUM BICARBONATE
     Dosage: 1 MILLIGRAM DAILY;  0?1?0?0
     Route: 048
  2. ALFACALCIDOL [Concomitant]
     Active Substance: ALFACALCIDOL
     Dosage: .25 MICROGRAM DAILY;   0?0?1?0
     Route: 048
  3. CANDESARTAN. [Suspect]
     Active Substance: CANDESARTAN
     Dosage: 32 MILLIGRAM DAILY;  0?0?1?0
     Route: 048
  4. ATORVASTATIN [Concomitant]
     Active Substance: ATORVASTATIN
     Dosage: 30 MILLIGRAM DAILY;  0?0?1?0
     Route: 048
  5. TORASEMID [Suspect]
     Active Substance: TORSEMIDE
     Dosage: 10 MILLIGRAM DAILY;  1?0?0?0
     Route: 048
  6. ACETYLSALICYLSAURE [Suspect]
     Active Substance: ASPIRIN
     Dosage: 100 MILLIGRAM DAILY;  0?1?0?0
     Route: 048
  7. CARVEDILOL. [Concomitant]
     Active Substance: CARVEDILOL
     Dosage: 1 DOSAGE FORMS DAILY; 25 MG, 0.5?0?0.5?0,
     Route: 048
  8. FEBUXOSTAT. [Concomitant]
     Active Substance: FEBUXOSTAT
     Dosage: 80 MILLIGRAM DAILY;   0?1?0?0
     Route: 048

REACTIONS (4)
  - Pain [Unknown]
  - Back pain [Unknown]
  - Sleep disorder due to general medical condition, insomnia type [Unknown]
  - Insomnia [Unknown]
